FAERS Safety Report 10232396 (Version 1)
Quarter: 2014Q2

REPORT INFORMATION
  Report Type: Spontaneous
  Country: US (occurrence: None)
  Receive Date: 20140611
  Receipt Date: 20140611
  Transmission Date: 20141212
  Serious: Yes (Death)
  Sender: FDA-Public Use
  Company Number: None

PATIENT
  Age: 59 Year
  Sex: Female
  Weight: 55.9 kg

DRUGS (1)
  1. TORISEL [Suspect]
     Indication: RENAL CELL CARCINOMA STAGE IV
     Dates: start: 20140115, end: 20140430

REACTIONS (8)
  - Respiratory failure [None]
  - Chronic obstructive pulmonary disease [None]
  - Toxicity to various agents [None]
  - Pneumonitis [None]
  - Interstitial lung disease [None]
  - Pulmonary oedema [None]
  - Atelectasis [None]
  - Unresponsive to stimuli [None]
